FAERS Safety Report 25355685 (Version 1)
Quarter: 2025Q2

REPORT INFORMATION
  Report Type: Spontaneous
  Country: US (occurrence: US)
  Receive Date: 20250525
  Receipt Date: 20250525
  Transmission Date: 20250716
  Serious: No
  Sender: ABBVIE
  Company Number: US-ABBVIE-6295219

PATIENT
  Age: 24 Year
  Sex: Male
  Weight: 70.306 kg

DRUGS (1)
  1. HUMIRA [Suspect]
     Active Substance: ADALIMUMAB
     Indication: Crohn^s disease
     Dosage: FORM STRENGTH: 40 MILLIGRAM
     Route: 058
     Dates: start: 202212

REACTIONS (3)
  - Injection site discharge [Not Recovered/Not Resolved]
  - Injection site pain [Recovered/Resolved]
  - Injection site pain [Recovered/Resolved]

NARRATIVE: CASE EVENT DATE: 20250422
